FAERS Safety Report 10332110 (Version 2)
Quarter: 2014Q3

REPORT INFORMATION
  Report Type: Spontaneous
  Country: US (occurrence: US)
  Receive Date: 20140722
  Receipt Date: 20140908
  Transmission Date: 20150326
  Serious: No
  Sender: FDA-Public Use
  Company Number: US-PFIZER INC-2014202677

PATIENT
  Age: 28 Year
  Sex: Male

DRUGS (1)
  1. CHANTIX [Suspect]
     Active Substance: VARENICLINE TARTRATE
     Indication: SMOKING CESSATION THERAPY
     Dosage: 1 DF, 2X/DAY (APPROXIMATELY 7 HOURS APART)
     Route: 048
     Dates: start: 20140619

REACTIONS (6)
  - Terminal insomnia [Unknown]
  - Hyperhidrosis [Unknown]
  - Sleep disorder [Unknown]
  - Dizziness [Unknown]
  - Heart rate increased [Unknown]
  - Generalised anxiety disorder [Unknown]

NARRATIVE: CASE EVENT DATE: 2014
